FAERS Safety Report 7030827-1 (Version None)
Quarter: 2010Q4

REPORT INFORMATION
  Report Type: 
  Country: None (occurrence: None)
  Receive Date: 20101006
  Receipt Date: 20101001
  Transmission Date: 20110411
  Serious: No
  Sender: FDA-Public Use
  Company Number: US-PFIZER INC-2010116973

PATIENT
  Sex: Female
  Weight: 58.05 kg

DRUGS (2)
  1. ZITHROMAX [Suspect]
     Indication: COUGH
     Dosage: 250 MG, 2X/DAY
     Route: 048
     Dates: start: 20100908
  2. ZITHROMAX [Suspect]
     Indication: DYSPNOEA

REACTIONS (1)
  - DRUG INEFFECTIVE [None]
